FAERS Safety Report 7224455-2 (Version None)
Quarter: 2011Q1

REPORT INFORMATION
  Report Type: 
  Country: None (occurrence: None)
  Receive Date: 20110113
  Receipt Date: 20110104
  Transmission Date: 20110831
  Serious: Yes (Hospitalization)
  Sender: FDA-Public Use
  Company Number: GB-US-EMD SERONO, INC.-220046J10GBR

PATIENT
  Sex: Female

DRUGS (1)
  1. SAIZEN [Suspect]
     Indication: PRODUCT USED FOR UNKNOWN INDICATION

REACTIONS (5)
  - HERNIA REPAIR [None]
  - VOMITING [None]
  - DIARRHOEA [None]
  - OESOPHAGOGASTRIC FUNDOPLASTY [None]
  - ABDOMINAL DISTENSION [None]
